FAERS Safety Report 4300620-9 (Version None)
Quarter: 2004Q1

REPORT INFORMATION
  Report Type: 
  Country: None (occurrence: None)
  Receive Date: 20040218
  Receipt Date: 20040210
  Transmission Date: 20041129
  Serious: Yes (Hospitalization)
  Sender: FDA-Public Use
  Company Number: 2004198613DE

PATIENT
  Age: 67 Year
  Sex: Female
  Weight: 74 kg

DRUGS (3)
  1. EPIRUBICIN [Suspect]
     Indication: BREAST CANCER
     Dosage: 100 MG, QD, IV
     Route: 042
     Dates: start: 20040112, end: 20040112
  2. COMPARATOR-CYCLOSPHOSPHAMIDE (CYCLOPHOSPHAMIDE) TABLET [Suspect]
     Indication: BREAST CANCER
     Dosage: 150 MG, QD, ORAL
     Route: 048
     Dates: start: 20040105, end: 20040119
  3. FLUOROURACIL [Suspect]
     Indication: BREAST CANCER
     Dosage: 900 MG, QD, IV
     Route: 042
     Dates: start: 20040112, end: 20040112

REACTIONS (1)
  - PYREXIA [None]
